FAERS Safety Report 13986003 (Version 1)
Quarter: 2017Q3

REPORT INFORMATION
  Report Type: Spontaneous
  Country: AT (occurrence: AT)
  Receive Date: 20170919
  Receipt Date: 20170919
  Transmission Date: 20171128
  Serious: Yes (Death, Hospitalization, Other)
  Sender: FDA-Public Use
  Company Number: AT-BRISTOL-MYERS SQUIBB COMPANY-BMS-2017-083881

PATIENT
  Age: 78 Year
  Sex: Female

DRUGS (2)
  1. INSULIN [Suspect]
     Active Substance: INSULIN NOS
     Indication: CHRONIC KIDNEY DISEASE
     Dosage: UNK UNK, BID
     Route: 065
  2. METFORMIN HYDROCHLORIDE. [Suspect]
     Active Substance: METFORMIN HYDROCHLORIDE
     Indication: CHRONIC KIDNEY DISEASE
     Dosage: 850 MG, BID
     Route: 065

REACTIONS (3)
  - Lactic acidosis [Fatal]
  - Ketoacidosis [Recovering/Resolving]
  - Acute kidney injury [Recovered/Resolved]
